FAERS Safety Report 4681324-X (Version None)
Quarter: 2005Q2

REPORT INFORMATION
  Report Type: 
  Country: None (occurrence: None)
  Receive Date: 20050601
  Receipt Date: 20050523
  Transmission Date: 20051028
  Serious: Yes (Life-Threatening)
  Sender: FDA-Public Use
  Company Number: 214360

PATIENT
  Age: 44 Year
  Sex: Female
  Weight: 111.6 kg

DRUGS (4)
  1. XOLAIR [Suspect]
     Indication: ASTHMA
     Dosage: 300 MG, Q4W, SUBCUTANEOUS
     Route: 058
     Dates: start: 20050107, end: 20050505
  2. THEOPHYLLINE [Concomitant]
  3. ADVAIR (SALMETEROL XINAFOATE, FLUTICASONE PROPIONATE) [Concomitant]
  4. SINGULAIR [Concomitant]

REACTIONS (1)
  - ANAPHYLACTIC REACTION [None]
